FAERS Safety Report 8227410-9 (Version None)
Quarter: 2012Q1

REPORT INFORMATION
  Report Type: 
  Country: None (occurrence: None)
  Receive Date: 20120322
  Receipt Date: 20120229
  Transmission Date: 20120608
  Serious: Yes (Hospitalization, Other)
  Sender: FDA-Public Use
  Company Number: JP-AMGEN-JPNSP2012008896

PATIENT
  Age: 55 Year
  Sex: Male
  Weight: 64.1 kg

DRUGS (8)
  1. ENBREL [Suspect]
     Indication: RHEUMATOID ARTHRITIS
     Dosage: 25 MG, 2X/WEEK
     Dates: start: 20100413, end: 20100915
  2. ENBREL [Suspect]
     Dosage: 25 MG, 2X/WEEK
     Dates: start: 20100922
  3. CELECOXIB [Concomitant]
     Dosage: DF, 1X/DAY
     Dates: start: 20090518, end: 20100915
  4. RHEUMATREX [Concomitant]
     Indication: RHEUMATOID ARTHRITIS
     Dosage: 4 MG, WEEKLY
     Route: 048
     Dates: start: 20100616, end: 20100915
  5. FOLIC ACID [Concomitant]
     Indication: PROPHYLAXIS
     Dosage: UNK DF, WEEKLY
     Route: 048
     Dates: start: 20100616, end: 20100915
  6. LANSOPRAZOLE [Concomitant]
     Indication: GASTRITIS PROPHYLAXIS
     Dosage: UNK
     Route: 048
     Dates: start: 20090518
  7. PREDNISOLONE [Concomitant]
     Indication: PAIN
     Dosage: UNK,DF, 1X/DAY
     Route: 048
  8. CELECOXIB [Concomitant]
     Indication: PAIN
     Dosage: UNK, DF, 1X/DAY
     Route: 048
     Dates: start: 20090518, end: 20100915

REACTIONS (2)
  - INTERSTITIAL LUNG DISEASE [None]
  - COLLAGEN DISORDER [None]
